FAERS Safety Report 7117948-X (Version None)
Quarter: 2010Q4

REPORT INFORMATION
  Report Type: 
  Country: None (occurrence: None)
  Receive Date: 20101123
  Receipt Date: 20101110
  Transmission Date: 20110411
  Serious: Yes (Hospitalization)
  Sender: FDA-Public Use
  Company Number: PHHY2010VE76308

PATIENT
  Sex: Female

DRUGS (6)
  1. ACLASTA [Suspect]
     Dosage: 5MG/YEAR
     Route: 042
     Dates: start: 20080327
  2. ACLASTA [Suspect]
     Dosage: 5MG/YEAR
     Route: 042
     Dates: start: 20090101
  3. ACLASTA [Suspect]
     Dosage: 5MG/YEAR
     Route: 042
     Dates: start: 20100201
  4. CALCIUM [Concomitant]
  5. MAGNESIUM [Concomitant]
  6. GLUCOSAMINE [Concomitant]

REACTIONS (3)
  - BONE OPERATION [None]
  - FEMUR FRACTURE [None]
  - PAIN [None]
